FAERS Safety Report 5155720-0 (Version None)
Quarter: 2006Q4

REPORT INFORMATION
  Report Type: 
  Country: None (occurrence: None)
  Receive Date: 20061113
  Receipt Date: 20061101
  Transmission Date: 20070319
  Serious: Yes (Other)
  Sender: FDA-Public Use
  Company Number: 2006135049

PATIENT
  Age: 81 Year
  Sex: Female
  Weight: 51.7101 kg

DRUGS (5)
  1. VISINE PURE TEARS (GLYCERIN, POLYEHTYLENE GLYCOL, HYDROXYPROPYLMETHYLC [Suspect]
     Indication: DRY EYE
     Dosage: 1-2 DROPS EVERY 4 HOURS, OPHTHALMIC
     Route: 047
     Dates: start: 20060501, end: 20061001
  2. ASCORBIC ACID [Concomitant]
  3. TOCOPHEROL CONCENTRATE CAP [Concomitant]
  4. ERGOCALCIFEROL [Concomitant]
  5. RETINOL [Concomitant]

REACTIONS (1)
  - CORNEAL ABRASION [None]
